FAERS Safety Report 6398604-2 (Version None)
Quarter: 2009Q4

REPORT INFORMATION
  Report Type: 
  Country: None (occurrence: None)
  Receive Date: 20091013
  Receipt Date: 20091009
  Transmission Date: 20100525
  Serious: Yes (Death, Hospitalization)
  Sender: FDA-Public Use
  Company Number: US-CELGENEUS-163-20785-09070137

PATIENT
  Sex: Male

DRUGS (3)
  1. THALOMID [Suspect]
     Indication: MULTIPLE MYELOMA
     Route: 048
     Dates: start: 20090520, end: 20090622
  2. THALOMID [Suspect]
     Route: 048
     Dates: start: 20080201
  3. THALOMID [Suspect]
     Route: 048
     Dates: start: 20080101, end: 20080201

REACTIONS (6)
  - ASTHENIA [None]
  - CARDIAC ARREST [None]
  - CONVULSION [None]
  - MENTAL STATUS CHANGES [None]
  - SEPSIS [None]
  - URINARY TRACT INFECTION [None]
